FAERS Safety Report 17141583 (Version 2)
Quarter: 2020Q1

REPORT INFORMATION
  Report Type: Spontaneous
  Country: US (occurrence: US)
  Receive Date: 20191211
  Receipt Date: 20200317
  Transmission Date: 20200409
  Serious: Yes (Other)
  Sender: FDA-Public Use
  Company Number: US-SA-2019SA340287

PATIENT
  Age: 31 Year
  Sex: Female
  Weight: 79.3 kg

DRUGS (14)
  1. NEULASTA [Concomitant]
     Active Substance: PEGFILGRASTIM
  2. ADVIL [IBUPROFEN] [Concomitant]
     Active Substance: IBUPROFEN
  3. TAXOTERE [Suspect]
     Active Substance: DOCETAXEL
     Dosage: 250 ML, Q3W
     Route: 042
     Dates: start: 20110803, end: 20110803
  4. ADRIAMYCIN [Concomitant]
     Active Substance: DOXORUBICIN HYDROCHLORIDE
     Dosage: UNK ML
     Dates: start: 20110421, end: 20110421
  5. NEOSAR [Concomitant]
     Active Substance: CYCLOPHOSPHAMIDE
     Indication: BREAST CANCER FEMALE
  6. CYTOXAN [Concomitant]
     Active Substance: CYCLOPHOSPHAMIDE
     Indication: BREAST CANCER FEMALE
     Dosage: UNK
     Dates: start: 20110421, end: 20110421
  7. CYTOXAN [Concomitant]
     Active Substance: CYCLOPHOSPHAMIDE
     Dosage: UNK
     Dates: start: 20110803, end: 20110803
  8. SYMBICORT [Concomitant]
     Active Substance: BUDESONIDE\FORMOTEROL FUMARATE DIHYDRATE
  9. PROCHLORPERAZINE. [Concomitant]
     Active Substance: PROCHLORPERAZINE
  10. ADRIAMYCIN [Concomitant]
     Active Substance: DOXORUBICIN HYDROCHLORIDE
     Indication: BREAST CANCER FEMALE
     Dosage: UNK ML
     Dates: start: 20110803, end: 20110803
  11. HYDROCODONE [Concomitant]
     Active Substance: HYDROCODONE
  12. TAXOTERE [Suspect]
     Active Substance: DOCETAXEL
     Indication: BREAST CANCER FEMALE
     Dosage: 250 ML, Q3W
     Route: 042
     Dates: start: 20110414, end: 20110414
  13. PHENTERMINE. [Concomitant]
     Active Substance: PHENTERMINE
     Dosage: UNK
     Dates: start: 2007, end: 2011
  14. ZOFRAN [Concomitant]
     Active Substance: ONDANSETRON HYDROCHLORIDE

REACTIONS (1)
  - Alopecia [Recovering/Resolving]

NARRATIVE: CASE EVENT DATE: 201109
